FAERS Safety Report 10045417 (Version 1)
Quarter: 2014Q1

REPORT INFORMATION
  Report Type: Spontaneous
  Country: DE (occurrence: DE)
  Receive Date: 20140328
  Receipt Date: 20140328
  Transmission Date: 20141002
  Serious: Yes (Death)
  Sender: FDA-Public Use
  Company Number: DE-TEVA-470787GER

PATIENT
  Age: 46 Year
  Sex: Female

DRUGS (3)
  1. FENTANYL [Suspect]
     Dosage: 34 PATCHES WITH RELEASE RATES FROM 25 UP TO 100 ?G/H
     Route: 062
  2. BROMAZEPAM [Interacting]
     Route: 065
  3. METOPROLOL [Concomitant]
     Indication: PRODUCT USED FOR UNKNOWN INDICATION
     Route: 065

REACTIONS (3)
  - Completed suicide [Fatal]
  - Intentional overdose [Fatal]
  - Drug interaction [Unknown]
